FAERS Safety Report 7683755-2 (Version None)
Quarter: 2011Q3

REPORT INFORMATION
  Report Type: 
  Country: None (occurrence: None)
  Receive Date: 20110815
  Receipt Date: 20110811
  Transmission Date: 20111222
  Serious: Yes (Other)
  Sender: FDA-Public Use
  Company Number: US-PFIZER INC-2011185061

PATIENT
  Sex: Female

DRUGS (3)
  1. VALPROIC ACID [Concomitant]
     Dosage: UNK
  2. PHENYTOIN [Suspect]
     Dosage: UNK
  3. DILANTIN-125 [Suspect]
     Dosage: 100 MG, 3X/DAY

REACTIONS (1)
  - GRAND MAL CONVULSION [None]
